FAERS Safety Report 4775575-3 (Version None)
Quarter: 2005Q3

REPORT INFORMATION
  Report Type: 
  Country: None (occurrence: None)
  Receive Date: 20050919
  Receipt Date: 20050919
  Transmission Date: 20060218
  Serious: Yes (Death, Hospitalization)
  Sender: FDA-Public Use
  Company Number: None

PATIENT
  Sex: Female
  Weight: 62.3 kg

DRUGS (3)
  1. METHOTREXATE [Suspect]
     Indication: ACUTE LYMPHOCYTIC LEUKAEMIA
     Dosage: SEE IMAGE
     Dates: start: 20050822
  2. DEXAMETHASONE [Suspect]
     Dosage: SEE IMAGE
     Dates: start: 20050823, end: 20050829
  3. DEXAMETHASONE [Suspect]
     Dosage: SEE IMAGE
     Dates: start: 20050822

REACTIONS (10)
  - BACILLUS INFECTION [None]
  - BLOOD CULTURE POSITIVE [None]
  - BRAIN HERNIATION [None]
  - CSF CULTURE POSITIVE [None]
  - HAEMORRHAGE INTRACRANIAL [None]
  - INTRACRANIAL PRESSURE INCREASED [None]
  - NEUTROPHIL COUNT DECREASED [None]
  - PHARYNGOLARYNGEAL PAIN [None]
  - PYREXIA [None]
  - THROMBOCYTOPENIA [None]
